FAERS Safety Report 6706321-1 (Version None)
Quarter: 2010Q2

REPORT INFORMATION
  Report Type: 
  Country: None (occurrence: None)
  Receive Date: 20100503
  Receipt Date: 20100419
  Transmission Date: 20101027
  Serious: Yes (Hospitalization, Other)
  Sender: FDA-Public Use
  Company Number: PHHY2010IT24919

PATIENT
  Age: 28 Year
  Sex: Female
  Weight: 35 kg

DRUGS (2)
  1. DEFEROXAMINE MESYLATE [Suspect]
     Indication: IRON OVERLOAD
     Dosage: 20 MG/KG/DAY
  2. BETAMETHASONE [Concomitant]
     Indication: PROPHYLAXIS

REACTIONS (10)
  - ANAEMIA [None]
  - ARTHRALGIA [None]
  - BACK PAIN [None]
  - CAESAREAN SECTION [None]
  - DEHYDRATION [None]
  - DRUG EXPOSURE DURING PREGNANCY [None]
  - HAEMOLYSIS [None]
  - PREMATURE LABOUR [None]
  - PYREXIA [None]
  - VOMITING [None]
